FAERS Safety Report 5373659-2 (Version None)
Quarter: 2007Q2

REPORT INFORMATION
  Report Type: 
  Country: None (occurrence: None)
  Receive Date: 20070628
  Receipt Date: 20070620
  Transmission Date: 20071010
  Serious: Yes (Hospitalization)
  Sender: FDA-Public Use
  Company Number: HQWYE712920JUN07

PATIENT
  Sex: Female

DRUGS (11)
  1. CORDARONE [Suspect]
     Route: 048
     Dates: start: 20070502, end: 20070517
  2. CORDARONE [Interacting]
     Route: 048
     Dates: start: 20070101
  3. ALDACTONE [Concomitant]
  4. PERINDOPRIL ERBUMINE [Concomitant]
     Dosage: UNSPECIFIED
     Dates: end: 20070516
  5. RISPERDAL [Concomitant]
     Dosage: UNSPECIFIED
     Route: 048
  6. LASIX [Concomitant]
     Route: 048
     Dates: end: 20070516
  7. LASIX [Concomitant]
     Route: 048
     Dates: start: 20070517
  8. BISOPROLOL FUMARATE [Concomitant]
     Dosage: UNSPECIFIED
     Route: 048
     Dates: end: 20070516
  9. PREVISCAN [Concomitant]
     Dosage: UNSPECIFIED
     Route: 048
  10. DIGOXIN [Interacting]
     Route: 048
     Dates: start: 20070502, end: 20070516
  11. TIAPRIDAL [Concomitant]
     Dosage: UNSPECIFIED
     Route: 048

REACTIONS (2)
  - ATRIAL FLUTTER [None]
  - DRUG INTERACTION [None]
